FAERS Safety Report 24895211 (Version 1)
Quarter: 2025Q1

REPORT INFORMATION
  Report Type: Spontaneous
  Country: US (occurrence: None)
  Receive Date: 20250128
  Receipt Date: 20250128
  Transmission Date: 20250409
  Serious: Yes (Hospitalization, Other)
  Sender: FDA-CTU
  Company Number: None

PATIENT
  Age: 66 Year
  Sex: Male
  Weight: 70.65 kg

DRUGS (1)
  1. CREON [Suspect]
     Active Substance: PANCRELIPASE AMYLASE\PANCRELIPASE LIPASE\PANCRELIPASE PROTEASE
     Indication: Pancreatic enzymes decreased
     Dates: start: 20240212, end: 20241019

REACTIONS (5)
  - Nausea [None]
  - Vomiting [None]
  - Gallbladder disorder [None]
  - Asthenia [None]
  - Malnutrition [None]

NARRATIVE: CASE EVENT DATE: 20241018
